FAERS Safety Report 9279624 (Version 1)
Quarter: 2013Q2

REPORT INFORMATION
  Report Type: Spontaneous
  Country: CA (occurrence: CA)
  Receive Date: 20130509
  Receipt Date: 20130509
  Transmission Date: 20140414
  Serious: Yes (Other)
  Sender: FDA-Public Use
  Company Number: CA-AMGEN-CANSP2013020266

PATIENT
  Age: 77 Year
  Sex: Female

DRUGS (1)
  1. PROLIA [Suspect]
     Indication: PRODUCT USED FOR UNKNOWN INDICATION
     Dosage: UNK
     Dates: start: 201112

REACTIONS (6)
  - Radius fracture [Recovering/Resolving]
  - Ulna fracture [Recovering/Resolving]
  - Injury [Recovering/Resolving]
  - Rash [Recovering/Resolving]
  - Impaired driving ability [Recovering/Resolving]
  - Activities of daily living impaired [Recovering/Resolving]
